FAERS Safety Report 12269594 (Version 1)
Quarter: 2016Q2

REPORT INFORMATION
  Report Type: Spontaneous
  Country: US (occurrence: US)
  Receive Date: 20160414
  Receipt Date: 20160414
  Transmission Date: 20160815
  Serious: Yes (Hospitalization)
  Sender: FDA-Public Use
  Company Number: US-SIGMA-TAU US-2016STPI000252

PATIENT
  Age: 64 Year
  Sex: Male

DRUGS (3)
  1. MATULANE [Suspect]
     Active Substance: PROCARBAZINE HYDROCHLORIDE
     Indication: HODGKIN^S DISEASE
     Dosage: 150 MG, QD
     Route: 048
     Dates: start: 20160301
  2. LOMUSTINE. [Concomitant]
     Active Substance: LOMUSTINE
     Indication: HODGKIN^S DISEASE
  3. LEUKERAN [Concomitant]
     Active Substance: CHLORAMBUCIL
     Indication: HODGKIN^S DISEASE

REACTIONS (1)
  - Ischaemic cardiomyopathy [Unknown]

NARRATIVE: CASE EVENT DATE: 201603
